FAERS Safety Report 8895715 (Version 1)
Quarter: 2012Q4

REPORT INFORMATION
  Report Type: 
  Country: NZ (occurrence: NZ)
  Receive Date: 20121107
  Receipt Date: 20121107
  Transmission Date: 20130627
  Serious: Yes (Hospitalization)
  Sender: FDA-Public Use
  Company Number: NZ-B.I. PHARMACEUTICALS,INC./RIDGEFIELD-2012-AU-01822AU

PATIENT
  Sex: Female

DRUGS (4)
  1. PRADAXA [Suspect]
     Indication: TRANSIENT ISCHAEMIC ATTACK
     Dosage: 300 mg
     Dates: start: 20110720
  2. CILAZAPRIL MONOHYDRATE\HYDROCHLOROTHIAZIDE [Suspect]
     Dosage: 5+12.5
     Dates: start: 2000
  3. SIMVASTATIN [Concomitant]
     Dosage: 40 mg
     Dates: start: 20000901
  4. VERAPAMIL [Concomitant]
     Dosage: 240 mg
     Dates: start: 2000

REACTIONS (2)
  - Syncope [Recovered/Resolved]
  - Renal impairment [Unknown]
